FAERS Safety Report 25913987 (Version 1)
Quarter: 2025Q4

REPORT INFORMATION
  Report Type: Spontaneous
  Country: US (occurrence: US)
  Receive Date: 20251013
  Receipt Date: 20251013
  Transmission Date: 20260117
  Serious: No
  Sender: SAMSUNG BIOEPIS
  Company Number: US-SAMSUNG BIOEPIS-SB-2025-13474

PATIENT
  Age: 29 Year
  Sex: Female

DRUGS (1)
  1. RENFLEXIS [Suspect]
     Active Substance: INFLIXIMAB-ABDA
     Indication: Product used for unknown indication

REACTIONS (3)
  - Heart rate increased [Unknown]
  - Hypersensitivity [Unknown]
  - Oropharyngeal pain [Unknown]
